FAERS Safety Report 14506124 (Version 6)
Quarter: 2022Q1

REPORT INFORMATION
  Report Type: Spontaneous
  Country: US (occurrence: US)
  Receive Date: 20180208
  Receipt Date: 20220106
  Transmission Date: 20220423
  Serious: Yes (Hospitalization, Disabling)
  Sender: FDA-Public Use
  Company Number: US-PFIZER INC-2018054420

PATIENT
  Age: 57 Year
  Sex: Female
  Weight: 73 kg

DRUGS (6)
  1. PRISTIQ EXTENDED-RELEASE [Suspect]
     Active Substance: DESVENLAFAXINE SUCCINATE
     Indication: Depression
     Dosage: 100 MG, 1X/DAY
     Route: 048
  2. ALPRAZOLAM [Concomitant]
     Active Substance: ALPRAZOLAM
     Indication: Anxiety
     Dosage: 0.25 MG, 2X/DAY
  3. ASTRAZOL [Concomitant]
     Indication: Neoplasm malignant
     Dosage: 10 MG, 1X/DAY
     Route: 048
  4. ASTRAZOL [Concomitant]
     Dosage: 10 MG, 1X/DAY
  5. ATORVASTATIN [Concomitant]
     Active Substance: ATORVASTATIN
     Indication: Blood cholesterol abnormal
     Dosage: UNK
  6. VALSARTAN [Concomitant]
     Active Substance: VALSARTAN
     Dosage: UNK

REACTIONS (5)
  - Arthropathy [Recovered/Resolved]
  - Dysgraphia [Unknown]
  - Fall [Unknown]
  - Joint dislocation [Unknown]
  - Limb injury [Unknown]

NARRATIVE: CASE EVENT DATE: 20201201
